FAERS Safety Report 5646103-5 (Version None)
Quarter: 2008Q1

REPORT INFORMATION
  Report Type: 
  Country: None (occurrence: None)
  Receive Date: 20080229
  Receipt Date: 20080219
  Transmission Date: 20080703
  Serious: Yes (Other)
  Sender: FDA-Public Use
  Company Number: US-PFIZER INC-2008016615

PATIENT
  Sex: Female
  Weight: 81.6 kg

DRUGS (3)
  1. CHANTIX [Suspect]
     Indication: SMOKING CESSATION THERAPY
     Dates: start: 20071201, end: 20071201
  2. NICOTINE [Suspect]
  3. ATENOLOL [Concomitant]
     Indication: HYPERTENSION

REACTIONS (6)
  - CEREBROVASCULAR ACCIDENT [None]
  - DEPRESSION [None]
  - EPISTAXIS [None]
  - HYPERTENSION [None]
  - SWELLING [None]
  - URTICARIA [None]
